FAERS Safety Report 8116593-7 (Version None)
Quarter: 2012Q1

REPORT INFORMATION
  Report Type: 
  Country: None (occurrence: None)
  Receive Date: 20120206
  Receipt Date: 20120126
  Transmission Date: 20120608
  Serious: Yes (Hospitalization)
  Sender: FDA-Public Use
  Company Number: DE-PFIZER INC-2012013977

PATIENT
  Age: 54 Year
  Sex: Male
  Weight: 90 kg

DRUGS (3)
  1. PIPERACILLIN AND TAZOBACTAM [Concomitant]
     Indication: PNEUMONIA
     Dosage: 4.5 G, 3X/DAY
     Route: 042
     Dates: start: 20111227, end: 20111231
  2. TEMSIROLIMUS [Suspect]
     Indication: GLIOBLASTOMA
     Dosage: 25 MG, WEEKLY
     Route: 042
     Dates: start: 20111122, end: 20120103
  3. AMOXICILLIN AND CLAVULANATE POTASSIUM [Concomitant]
     Indication: PNEUMONIA
     Dosage: 800/125 MG, 2X/DAY
     Route: 048
     Dates: start: 20120101, end: 20120108

REACTIONS (2)
  - PNEUMONIA MYCOPLASMAL [None]
  - PNEUMONIA CHLAMYDIAL [None]
